FAERS Safety Report 5649781-X (Version None)
Quarter: 2008Q1

REPORT INFORMATION
  Report Type: 
  Country: None (occurrence: None)
  Receive Date: 20080303
  Receipt Date: 20080221
  Transmission Date: 20080703
  Serious: Yes (Other)
  Sender: FDA-Public Use
  Company Number: 2008SP000228

PATIENT
  Age: 49 Year
  Sex: Male
  Weight: 71.6683 kg

DRUGS (9)
  1. PEG-INTRON [Suspect]
     Indication: HEPATITIS C
     Dosage: 120 MCG; QW; SC
     Route: 058
     Dates: start: 20071030
  2. RIBAVIRIN [Suspect]
     Indication: HEPATITIS C
     Dosage: 400 MG; BID; PO
     Route: 048
     Dates: start: 20071030
  3. ASPIRIN (CON.) [Concomitant]
  4. COMBIVENT (CON.) [Concomitant]
  5. ESCITALOPRAM (CON.) [Concomitant]
  6. LISINOPRIL (CON.) [Concomitant]
  7. OXYCOCODNE W/APAP (CON.) [Concomitant]
  8. PREVACID (CON.) [Concomitant]
  9. ZETIA (CON.) [Concomitant]

REACTIONS (11)
  - DEHYDRATION [None]
  - DISTURBANCE IN ATTENTION [None]
  - GASTROINTESTINAL SOUNDS ABNORMAL [None]
  - HAEMATEMESIS [None]
  - HAEMATOCHEZIA [None]
  - HAEMORRHAGE [None]
  - MALAISE [None]
  - MENTAL IMPAIRMENT [None]
  - NO THERAPEUTIC RESPONSE [None]
  - RESTLESSNESS [None]
  - STRESS [None]
